FAERS Safety Report 20619345 (Version 4)
Quarter: 2022Q2

REPORT INFORMATION
  Report Type: Spontaneous
  Country: US (occurrence: US)
  Receive Date: 20220322
  Receipt Date: 20220408
  Transmission Date: 20220720
  Serious: Yes (Hospitalization)
  Sender: FDA-Public Use
  Company Number: US-BAUSCH-BL-2022-007280

PATIENT
  Sex: Male
  Weight: 77.180 kg

DRUGS (3)
  1. DESMOPRESSIN ACETATE [Suspect]
     Active Substance: DESMOPRESSIN ACETATE
     Indication: Diabetes insipidus
     Dosage: 1-2 SPRAYS IN EACH NOSTRIL TWICE TO THREE TIMES DAILY.
     Route: 065
  2. SYNTHROID [Concomitant]
     Active Substance: LEVOTHYROXINE SODIUM
     Indication: Product used for unknown indication
  3. ADDERALL [Concomitant]
     Active Substance: AMPHETAMINE ASPARTATE\AMPHETAMINE SULFATE\DEXTROAMPHETAMINE SACCHARATE\DEXTROAMPHETAMINE SULFATE
     Indication: Product used for unknown indication

REACTIONS (8)
  - Blood sodium decreased [Unknown]
  - Ill-defined disorder [Not Recovered/Not Resolved]
  - Feeling abnormal [Unknown]
  - Pollakiuria [Unknown]
  - Lethargy [Unknown]
  - Drug ineffective [Unknown]
  - Product quality issue [Unknown]
  - Product taste abnormal [Unknown]
